FAERS Safety Report 8585739-9 (Version None)
Quarter: 2012Q3

REPORT INFORMATION
  Report Type: 
  Country: None (occurrence: None)
  Receive Date: 20120810
  Receipt Date: 20120809
  Transmission Date: 20120928
  Serious: Yes (Other)
  Sender: FDA-Public Use
  Company Number: US-ABBOTT-12P-163-0931507-00

PATIENT
  Age: 30 Year
  Sex: Female

DRUGS (3)
  1. REYATAZ [Suspect]
     Indication: ANTIVIRAL TREATMENT
     Route: 048
  2. TRUVADA [Suspect]
     Indication: ANTIVIRAL TREATMENT
     Route: 048
  3. NORVIR [Suspect]
     Indication: ANTIVIRAL TREATMENT
     Route: 048

REACTIONS (1)
  - ABORTION INDUCED [None]
